FAERS Safety Report 24862242 (Version 1)
Quarter: 2025Q1

REPORT INFORMATION
  Report Type: Spontaneous
  Country: AT (occurrence: AT)
  Receive Date: 20250120
  Receipt Date: 20250120
  Transmission Date: 20250408
  Serious: Yes (Hospitalization)
  Sender: TAKEDA
  Company Number: AT-JNJFOC-20241259848

PATIENT
  Age: 58 Year
  Sex: Male

DRUGS (2)
  1. NINLARO [Suspect]
     Active Substance: IXAZOMIB CITRATE
     Indication: Amyloidosis
  2. DARZALEX [Suspect]
     Active Substance: DARATUMUMAB
     Indication: Amyloidosis

REACTIONS (2)
  - Cerebrovascular accident [Unknown]
  - Cardiac failure [Unknown]
